FAERS Safety Report 5372680-8 (Version None)
Quarter: 2007Q2

REPORT INFORMATION
  Report Type: 
  Country: None (occurrence: None)
  Receive Date: 20070627
  Receipt Date: 20070618
  Transmission Date: 20071010
  Serious: Yes (Other)
  Sender: FDA-Public Use
  Company Number: JP-PFIZER INC-2007050380

PATIENT
  Age: 45 Year
  Sex: Male

DRUGS (2)
  1. NORVASC [Suspect]
     Dosage: DAILY DOSE:5MG
     Route: 048
  2. PULMICORT [Concomitant]

REACTIONS (2)
  - ASTHMA [None]
  - MALAISE [None]
